FAERS Safety Report 6010777-X (Version None)
Quarter: 2008Q4

REPORT INFORMATION
  Report Type: 
  Country: None (occurrence: None)
  Receive Date: 20081218
  Receipt Date: 20081208
  Transmission Date: 20090506
  Serious: Yes (Other)
  Sender: FDA-Public Use
  Company Number: PHEH2008US10896

PATIENT
  Sex: Female

DRUGS (2)
  1. GENTEAL GEL (NVO) [Suspect]
  2. GENTEAL DROPS (NVO) [Suspect]

REACTIONS (5)
  - DRUG INEFFECTIVE [None]
  - EYE BURNS [None]
  - EYE DISORDER [None]
  - EYE IRRITATION [None]
  - HYPERSENSITIVITY [None]
